FAERS Safety Report 4931069-3 (Version None)
Quarter: 2006Q1

REPORT INFORMATION
  Report Type: 
  Country: None (occurrence: None)
  Receive Date: 20060227
  Receipt Date: 20060210
  Transmission Date: 20060701
  Serious: Yes (Hospitalization)
  Sender: FDA-Public Use
  Company Number: 2006-0009099

PATIENT
  Age: 46 Year
  Sex: Male
  Weight: 78.3 kg

DRUGS (8)
  1. EMTRICITABINE/TENOFOVIR DF [Suspect]
     Indication: HIV INFECTION
     Dosage: 1 DOSAGE FORMS, 1 IN 1 D, ORAL
     Route: 048
     Dates: start: 20051208, end: 20051227
  2. EFAVIRENZ [Suspect]
     Indication: HIV INFECTION
     Dosage: 600 MG, 1 IN 1 D, ORAL
     Route: 048
     Dates: start: 20051208, end: 20051227
  3. ABACAVIR/LAMIVUDINE PLACEBO (PLACEBO) [Suspect]
     Indication: HIV INFECTION
     Dosage: 1 DOSAGE FORMS, 1 IN 1 D, ORAL
     Route: 048
  4. VICODIN [Concomitant]
  5. MIRTAZAPIN (MIRTAZAPINE) [Concomitant]
  6. CITALOPRAM (CITALOPRAM) [Concomitant]
  7. TMP/SMX(BACTRIM) [Concomitant]
  8. PENTAMIDINE (PENTAMIDINE) [Concomitant]

REACTIONS (9)
  - CONFUSIONAL STATE [None]
  - COORDINATION ABNORMAL [None]
  - DELIRIUM [None]
  - DIARRHOEA [None]
  - EATING DISORDER [None]
  - HYPONATRAEMIA [None]
  - INAPPROPRIATE AFFECT [None]
  - PYREXIA [None]
  - VOMITING [None]
